FAERS Safety Report 11634562 (Version 2)
Quarter: 2016Q1

REPORT INFORMATION
  Report Type: Spontaneous
  Country: DE (occurrence: DE)
  Receive Date: 20151015
  Receipt Date: 20160106
  Transmission Date: 20160525
  Serious: No
  Sender: FDA-Public Use
  Company Number: DE-TEVA-600212GER

PATIENT
  Age: 24 Year
  Sex: Female
  Weight: 72 kg

DRUGS (1)
  1. NITROFURANTOIN-RATIOPHARM 100 MG RETARDKAPSELN [Suspect]
     Active Substance: NITROFURANTOIN
     Indication: CYSTITIS NONINFECTIVE
     Dosage: 200 MILLIGRAM DAILY; 1-0-1
     Route: 048
     Dates: start: 20151006, end: 20151007

REACTIONS (3)
  - Chest discomfort [Recovered/Resolved]
  - Dyspnoea [Recovered/Resolved]
  - Pyrexia [Recovered/Resolved]

NARRATIVE: CASE EVENT DATE: 20151006
